FAERS Safety Report 8523578-5 (Version None)
Quarter: 2012Q3

REPORT INFORMATION
  Report Type: 
  Country: None (occurrence: None)
  Receive Date: 20120709
  Receipt Date: 20120625
  Transmission Date: 20120928
  Serious: Yes (Hospitalization)
  Sender: FDA-Public Use
  Company Number: TCI2012A03360

PATIENT
  Age: 61 Year
  Sex: Female

DRUGS (9)
  1. CALCIUM CHANNEL BLOCKERS [Concomitant]
  2. ANTIHYPERTENSIVES [Concomitant]
  3. ANGITENSIN II ANTAGONISTS [Concomitant]
  4. ALPHA GLUCOSIDASE INHIBITORS [Concomitant]
  5. INSULINS AND ANALOGUES [Concomitant]
  6. ANTIHROMBOTIC AGENTS [Concomitant]
  7. ACTOS [Suspect]
     Indication: TYPE 2 DIABETES MELLITUS
     Dosage: 15 MG (15 MG, 1 D), PER ORAL
     Route: 048
     Dates: start: 20080404
  8. DIURETICS [Concomitant]
  9. SULFONAMIDES, UREA DERIVATIVES [Concomitant]

REACTIONS (9)
  - BLOOD CREATININE INCREASED [None]
  - CARDIAC FAILURE [None]
  - OEDEMA [None]
  - DISEASE PROGRESSION [None]
  - CONDITION AGGRAVATED [None]
  - DIABETIC NEPHROPATHY [None]
  - COUGH [None]
  - DYSPNOEA [None]
  - WEIGHT INCREASED [None]
